FAERS Safety Report 4984327-0 (Version None)
Quarter: 2006Q2

REPORT INFORMATION
  Report Type: 
  Country: None (occurrence: None)
  Receive Date: 20060420
  Receipt Date: 20060410
  Transmission Date: 20061013
  Serious: Yes (Hospitalization)
  Sender: FDA-Public Use
  Company Number: GXKR2006JP01728

PATIENT
  Age: 52 Year
  Sex: Female
  Weight: 82 kg

DRUGS (2)
  1. PREDNISOLONE (NGX) (PREDNISOLONE) UNKNOWN [Suspect]
     Indication: ANAEMIA HAEMOLYTIC AUTOIMMUNE
     Dosage: 30 MG, QD,; 10 MG, QOD
     Dates: start: 20011101
  2. PREDNISOLONE (NGX) (PREDNISOLONE) UNKNOWN [Suspect]
     Indication: ANAEMIA HAEMOLYTIC AUTOIMMUNE
     Dosage: 30 MG, QD,; 10 MG, QOD
     Dates: start: 20020201

REACTIONS (10)
  - BRAIN ABSCESS [None]
  - CHEST PAIN [None]
  - COUGH [None]
  - HEADACHE [None]
  - HEPATIC ENZYME INCREASED [None]
  - LEUKOCYTOSIS [None]
  - LUNG INFECTION [None]
  - NOCARDIOSIS [None]
  - PYREXIA [None]
  - VOMITING [None]
